FAERS Safety Report 7029736-3 (Version None)
Quarter: 2010Q4

REPORT INFORMATION
  Report Type: 
  Country: None (occurrence: None)
  Receive Date: 20101005
  Receipt Date: 20101005
  Transmission Date: 20110411
  Serious: No
  Sender: FDA-Public Use
  Company Number: None

PATIENT
  Age: 44 Year
  Sex: Male
  Weight: 80.7403 kg

DRUGS (1)
  1. NUVIGIL [Suspect]
     Indication: POOR QUALITY SLEEP
     Dosage: 1 TABLET DAILY
     Dates: start: 20100914, end: 20100928

REACTIONS (3)
  - DIZZINESS [None]
  - HALLUCINATION, VISUAL [None]
  - PSYCHOTIC DISORDER [None]
